FAERS Safety Report 6192581-5 (Version None)
Quarter: 2009Q2

REPORT INFORMATION
  Report Type: 
  Country: None (occurrence: None)
  Receive Date: 20090518
  Receipt Date: 20070709
  Transmission Date: 20091009
  Serious: Yes (Hospitalization, Other)
  Sender: FDA-Public Use
  Company Number: US-ASTRAZENECA-2006UW10961

PATIENT
  Age: 9844 Day
  Sex: Female
  Weight: 105.2 kg

DRUGS (22)
  1. SEROQUEL [Suspect]
     Indication: DEPRESSION
     Dosage: 50-600 MG
     Route: 048
     Dates: start: 20000612
  2. SEROQUEL [Suspect]
     Indication: SLEEP DISORDER
     Dosage: 50-600 MG
     Route: 048
     Dates: start: 20000612
  3. ZYPREXA [Suspect]
     Route: 065
  4. FLEXERIL [Concomitant]
     Route: 048
  5. LORTAB [Concomitant]
     Dosage: 500-7.5 MG
     Route: 048
  6. ALTACE [Concomitant]
     Route: 048
  7. GLUCOPHAGE [Concomitant]
     Route: 048
  8. GLUCOTROL [Concomitant]
     Route: 048
  9. ZOCOR [Concomitant]
     Route: 065
  10. TYLENOL [Concomitant]
     Indication: PAIN
     Route: 065
     Dates: start: 20030217
  11. VISTARIL [Concomitant]
     Route: 065
     Dates: start: 20030217
  12. ZOLOFT [Concomitant]
     Dosage: 50-100 MG
     Route: 065
     Dates: start: 20030928
  13. RISPERDAL [Concomitant]
     Route: 065
     Dates: start: 20020817
  14. TRAZODONE HYDROCHLORIDE [Concomitant]
     Route: 065
  15. REMERON [Concomitant]
     Indication: DEPRESSION
     Route: 065
  16. COGENTIN [Concomitant]
     Route: 065
  17. TILADE [Concomitant]
     Dosage: 1.7 MG 2 PUFF THREE TIMES A DAY
     Route: 055
     Dates: start: 20020728
  18. ALBUTEROL [Concomitant]
     Indication: ASTHMA
     Dosage: 90 MCG 2 PUFF TWO TIMES A DAY
     Route: 055
  19. HALDOL [Concomitant]
     Route: 065
     Dates: start: 20020728
  20. MIRTAZAPINE [Concomitant]
     Route: 065
     Dates: start: 20011113
  21. ULTRAM [Concomitant]
     Route: 065
     Dates: start: 20030203
  22. TRIAMTERENE [Concomitant]
     Route: 065

REACTIONS (26)
  - ANOREXIA [None]
  - BIPOLAR DISORDER [None]
  - CHEST PAIN [None]
  - CONFUSIONAL STATE [None]
  - CONSTIPATION [None]
  - COUGH [None]
  - DIZZINESS [None]
  - DYSPNOEA [None]
  - DYSTHYMIC DISORDER [None]
  - EUPHORIC MOOD [None]
  - HALLUCINATION [None]
  - HEAD INJURY [None]
  - HYPERHIDROSIS [None]
  - HYPOTENSION [None]
  - INSOMNIA [None]
  - MAJOR DEPRESSION [None]
  - NECK PAIN [None]
  - PALPITATIONS [None]
  - POST-TRAUMATIC STRESS DISORDER [None]
  - PSYCHOTIC DISORDER [None]
  - SCHIZOAFFECTIVE DISORDER [None]
  - SCHIZOPHRENIA, PARANOID TYPE [None]
  - SUICIDAL IDEATION [None]
  - VISION BLURRED [None]
  - WEIGHT DECREASED [None]
  - WHEEZING [None]
